FAERS Safety Report 9931311 (Version 1)
Quarter: 2014Q1

REPORT INFORMATION
  Report Type: Spontaneous
  Country: US (occurrence: US)
  Receive Date: 20140228
  Receipt Date: 20140228
  Transmission Date: 20141002
  Serious: Yes (Hospitalization)
  Sender: FDA-Public Use
  Company Number: US-BIOGENIDEC-2014BI016120

PATIENT
  Sex: Female

DRUGS (1)
  1. AVONEX [Suspect]
     Indication: MULTIPLE SCLEROSIS
     Route: 030
     Dates: start: 20010307

REACTIONS (5)
  - Fall [Recovered/Resolved]
  - Convulsion [Recovered/Resolved]
  - Facial pain [Recovered/Resolved]
  - Hypoaesthesia [Not Recovered/Not Resolved]
  - Radiation injury [Not Recovered/Not Resolved]
